FAERS Safety Report 25808665 (Version 1)
Quarter: 2025Q3

REPORT INFORMATION
  Report Type: Spontaneous
  Country: US (occurrence: None)
  Receive Date: 20250916
  Receipt Date: 20250916
  Transmission Date: 20251021
  Serious: No
  Sender: FDA-CTU
  Company Number: None

PATIENT

DRUGS (2)
  1. MACITENTAN\TADALAFIL [Suspect]
     Active Substance: MACITENTAN\TADALAFIL
  2. BUMETANIDE [Suspect]
     Active Substance: BUMETANIDE

REACTIONS (3)
  - Dyspnoea [None]
  - Self-medication [None]
  - Cardiac valve disease [None]
